FAERS Safety Report 5031353-1 (Version None)
Quarter: 2006Q2

REPORT INFORMATION
  Report Type: 
  Country: None (occurrence: None)
  Receive Date: 20060504
  Receipt Date: 20050608
  Transmission Date: 20061013
  Serious: Yes (Other)
  Sender: FDA-Public Use
  Company Number: SGB1-2005-00236

PATIENT
  Sex: Male

DRUGS (2)
  1. ANAGRELIDE HCL [Suspect]
     Dosage: 2.5MG DAILY, ORAL
     Route: 048
  2. ASPIRIN [Concomitant]

REACTIONS (1)
  - HAEMATOCRIT DECREASED [None]
